FAERS Safety Report 5621207-1 (Version None)
Quarter: 2008Q1

REPORT INFORMATION
  Report Type: 
  Country: None (occurrence: None)
  Receive Date: 20080114
  Receipt Date: 20061209
  Transmission Date: 20080703
  Serious: Yes (Hospitalization, Disabling)
  Sender: FDA-Public Use
  Company Number: A03200607466

PATIENT
  Age: 75 Year
  Sex: Male
  Weight: 81.6475 kg

DRUGS (3)
  1. PLAVIX [Suspect]
     Indication: CEREBROVASCULAR ACCIDENT
     Dosage: 75 MG QD - ORAL
     Route: 048
     Dates: start: 20030501, end: 20050616
  2. PLAVIX [Suspect]
     Indication: PROPHYLAXIS
     Dosage: 75 MG QD - ORAL
     Route: 048
     Dates: start: 20030501, end: 20050616
  3. ACETYLSALICYLIC ACID SRT [Concomitant]

REACTIONS (1)
  - CEREBROVASCULAR ACCIDENT [None]
